FAERS Safety Report 6381843-4 (Version None)
Quarter: 2009Q3

REPORT INFORMATION
  Report Type: 
  Country: None (occurrence: None)
  Receive Date: 20090925
  Receipt Date: 20090915
  Transmission Date: 20100115
  Serious: Yes (Hospitalization)
  Sender: FDA-Public Use
  Company Number: A-US2004-06262

PATIENT
  Age: 54 Year
  Sex: Female

DRUGS (1)
  1. TRACLEER [Suspect]
     Indication: PULMONARY ARTERIAL HYPERTENSION
     Dosage: ORAL
     Route: 048
     Dates: start: 20050825

REACTIONS (5)
  - DYSPNOEA [None]
  - HEPATIC CIRRHOSIS [None]
  - PIGMENTATION DISORDER [None]
  - PRURITUS [None]
  - PULMONARY ARTERIAL HYPERTENSION [None]
